FAERS Safety Report 5933321-1 (Version None)
Quarter: 2008Q4

REPORT INFORMATION
  Report Type: 
  Country: None (occurrence: None)
  Receive Date: 20081028
  Receipt Date: 20081016
  Transmission Date: 20090506
  Serious: Yes (Hospitalization)
  Sender: FDA-Public Use
  Company Number: FR-PFIZER INC-2008087909

PATIENT
  Age: 70 Year
  Sex: Female

DRUGS (2)
  1. DALACINE [Suspect]
     Indication: CHOLECYSTITIS
     Dates: start: 20080510, end: 20080520
  2. OXCARBAZEPINE [Concomitant]

REACTIONS (3)
  - DRUG RASH WITH EOSINOPHILIA AND SYSTEMIC SYMPTOMS [None]
  - RASH [None]
  - RENAL FAILURE [None]
